FAERS Safety Report 25740846 (Version 1)
Quarter: 2025Q3

REPORT INFORMATION
  Report Type: Spontaneous
  Country: US (occurrence: US)
  Receive Date: 20250829
  Receipt Date: 20250829
  Transmission Date: 20251020
  Serious: No
  Sender: CIPLA
  Company Number: US-CIPLA LTD.-2025US01769

PATIENT

DRUGS (2)
  1. ALENDRONATE [Suspect]
     Active Substance: ALENDRONATE SODIUM
     Indication: Product used for unknown indication
     Route: 065
  2. ALENDRONATE [Suspect]
     Active Substance: ALENDRONATE SODIUM
     Route: 065
     Dates: start: 20250203

REACTIONS (3)
  - Intentional dose omission [Unknown]
  - Product packaging difficult to open [Unknown]
  - Product package associated injury [Unknown]

NARRATIVE: CASE EVENT DATE: 20250203
